FAERS Safety Report 18813987 (Version 3)
Quarter: 2021Q1

REPORT INFORMATION
  Report Type: Spontaneous
  Country: US (occurrence: US)
  Receive Date: 20210201
  Receipt Date: 20210308
  Transmission Date: 20210419
  Serious: Yes (Other)
  Sender: FDA-Public Use
  Company Number: US-PFIZER INC-2021051196

PATIENT
  Age: 87 Year
  Sex: Female

DRUGS (1)
  1. PROCAINE BENZYLPENICILLIN [Suspect]
     Active Substance: PENICILLIN G PROCAINE
     Dosage: UNK

REACTIONS (2)
  - Drug hypersensitivity [Unknown]
  - Myocardial infarction [Unknown]

NARRATIVE: CASE EVENT DATE: 20181227
